FAERS Safety Report 11189122 (Version 1)
Quarter: 2015Q2

REPORT INFORMATION
  Report Type: Spontaneous
  Country: US (occurrence: US)
  Receive Date: 20150615
  Receipt Date: 20150615
  Transmission Date: 20150821
  Serious: Yes (Other)
  Sender: FDA-Public Use
  Company Number: US-ROCHE-1588556

PATIENT
  Age: 68 Year
  Sex: Female
  Weight: 113 kg

DRUGS (11)
  1. CINNAMON. [Suspect]
     Active Substance: CINNAMON
     Indication: BLOOD GLUCOSE INCREASED
     Route: 065
  2. ZORVOLEX [Suspect]
     Active Substance: DICLOFENAC
     Indication: OSTEOARTHRITIS
     Route: 048
  3. FISH OIL [Suspect]
     Active Substance: FISH OIL
     Indication: BLOOD CHOLESTEROL
     Dosage: 1 GEL CAP
     Route: 048
  4. VALIUM [Suspect]
     Active Substance: DIAZEPAM
     Indication: NEUROPATHY PERIPHERAL
     Dosage: 5-10 MG BUT ONLY TAKES 1 AND 1/2 TABLETS TO EQUAL 7.5MG BECAUSE IT MAKES HER GOOFY IN THE MORNING
     Route: 048
  5. OMEPRAZOLE. [Suspect]
     Active Substance: OMEPRAZOLE
     Indication: GASTROOESOPHAGEAL REFLUX DISEASE
     Route: 048
  6. VITAMIN D3 [Suspect]
     Active Substance: CHOLECALCIFEROL
     Indication: PRODUCT USED FOR UNKNOWN INDICATION
     Route: 048
  7. MELATONIN [Suspect]
     Active Substance: MELATONIN
     Indication: INSOMNIA
     Route: 048
  8. NORVASC [Suspect]
     Active Substance: AMLODIPINE BESYLATE
     Indication: BLOOD PRESSURE
     Route: 048
  9. FLAXSEED [Suspect]
     Active Substance: FLAX SEED
     Indication: BLOOD CHOLESTEROL
     Dosage: ONE GEL CAP
     Route: 048
  10. CYMBALTA [Suspect]
     Active Substance: DULOXETINE HYDROCHLORIDE
     Indication: NEUROPATHY PERIPHERAL
     Route: 065
     Dates: start: 201409, end: 2015
  11. CELEBREX [Suspect]
     Active Substance: CELECOXIB
     Indication: OSTEOARTHRITIS
     Route: 048
     Dates: start: 201409, end: 201505

REACTIONS (10)
  - Mucosal exfoliation [Recovering/Resolving]
  - Cough [Not Recovered/Not Resolved]
  - Fall [Unknown]
  - Urinary incontinence [Recovered/Resolved]
  - Drug hypersensitivity [Not Recovered/Not Resolved]
  - Joint swelling [Not Recovered/Not Resolved]
  - Sneezing [Not Recovered/Not Resolved]
  - Rib fracture [Unknown]
  - Fungal skin infection [Unknown]
  - Abulia [Recovered/Resolved]

NARRATIVE: CASE EVENT DATE: 201409
